FAERS Safety Report 19813957 (Version 2)
Quarter: 2021Q4

REPORT INFORMATION
  Report Type: Report from Study
  Country: US (occurrence: US)
  Receive Date: 20210910
  Receipt Date: 20211012
  Transmission Date: 20220304
  Serious: Yes (Hospitalization, Other)
  Sender: FDA-Public Use
  Company Number: US-BAYER-2020-286371

PATIENT
  Age: 61 Year
  Sex: Female
  Weight: 104.31 kg

DRUGS (29)
  1. STIVARGA [Suspect]
     Active Substance: REGORAFENIB
     Indication: Colon cancer
     Dosage: DAILY DOSE 80 MG, DAYS 1 THROUGH 7
     Route: 048
     Dates: start: 20201214
  2. STIVARGA [Suspect]
     Active Substance: REGORAFENIB
     Indication: Rectal cancer
     Dosage: DAILY DOSE 160 MG
  3. STIVARGA [Suspect]
     Active Substance: REGORAFENIB
     Indication: Metastases to adrenals
     Dosage: DAILY DOSE 120 MG, 2 WEEKS ON, 1 WEEK OFF, THEN 2 WEEKS ON
  4. STIVARGA [Suspect]
     Active Substance: REGORAFENIB
     Indication: Rectosigmoid cancer
     Dosage: 40 MG, QD
     Route: 048
     Dates: start: 20210809
  5. STIVARGA [Suspect]
     Active Substance: REGORAFENIB
     Indication: Metastases to liver
     Dosage: DAILY DOSE 120 MG FOR 2 WEEK ON 1 WEEK OFF
     Route: 048
  6. STIVARGA [Suspect]
     Active Substance: REGORAFENIB
     Indication: Metastases to biliary tract
  7. STIVARGA [Suspect]
     Active Substance: REGORAFENIB
     Indication: Metastases to gastrointestinal tract
  8. STIVARGA [Suspect]
     Active Substance: REGORAFENIB
     Indication: Colon cancer metastatic
  9. STIVARGA [Suspect]
     Active Substance: REGORAFENIB
     Indication: Hepatic cancer metastatic
  10. METOPROLOL SUCCINATE [Concomitant]
     Active Substance: METOPROLOL SUCCINATE
  11. CYCLOBENZAPRINE [Concomitant]
     Active Substance: CYCLOBENZAPRINE
     Dosage: UNK
  12. DILTIAZEM [Concomitant]
     Active Substance: DILTIAZEM
     Dosage: UNK
  13. PRILOSEC [Concomitant]
     Active Substance: OMEPRAZOLE MAGNESIUM
     Dosage: UNK
  14. TYLENOL [Concomitant]
     Active Substance: ACETAMINOPHEN
     Dosage: UNK
  15. VITAMIN D3 [Concomitant]
     Active Substance: CHOLECALCIFEROL
     Dosage: UNK
  16. ALBUTEROL [Concomitant]
     Active Substance: ALBUTEROL
     Dosage: UNK
  17. SYMBICORT [Concomitant]
     Active Substance: BUDESONIDE\FORMOTEROL FUMARATE DIHYDRATE
     Dosage: UNK
  18. BUDESONIDE\FORMOTEROL [Concomitant]
     Active Substance: BUDESONIDE\FORMOTEROL
     Dosage: UNK
  19. ALBUTEROL [Concomitant]
     Active Substance: ALBUTEROL
     Dosage: UNK
  20. LISINOPRIL [Concomitant]
     Active Substance: LISINOPRIL
     Dosage: UNK
  21. HYOSCYAMINE [Concomitant]
     Active Substance: HYOSCYAMINE
     Dosage: UNK
  22. AMIODARONE [Concomitant]
     Active Substance: AMIODARONE
     Dosage: UNK
  23. BENZONATATE [Concomitant]
     Active Substance: BENZONATATE
     Dosage: UNK
  24. ONDANSETRON [Concomitant]
     Active Substance: ONDANSETRON
     Dosage: UNK
  25. ASPIRIN [Concomitant]
     Active Substance: ASPIRIN
     Dosage: UNK
  26. DIGOXIN [Concomitant]
     Active Substance: DIGOXIN
     Dosage: UNK
  27. BACTRIM [Concomitant]
     Active Substance: SULFAMETHOXAZOLE\TRIMETHOPRIM
     Dosage: UNK
  28. CIPROFLOXACIN [Concomitant]
     Active Substance: CIPROFLOXACIN
     Dosage: UNK
  29. ELIQUIS [Concomitant]
     Active Substance: APIXABAN
     Dosage: UNK

REACTIONS (8)
  - Tachycardia [Unknown]
  - Haemoglobin decreased [Unknown]
  - Blood pressure abnormal [None]
  - Aphonia [Not Recovered/Not Resolved]
  - Pharyngitis streptococcal [Unknown]
  - Headache [Unknown]
  - Nausea [None]
  - Dry skin [Unknown]

NARRATIVE: CASE EVENT DATE: 20201223
